FAERS Safety Report 10211482 (Version 1)
Quarter: 2014Q2

REPORT INFORMATION
  Report Type: Spontaneous
  Country: DE (occurrence: DE)
  Receive Date: 20140602
  Receipt Date: 20140602
  Transmission Date: 20141212
  Serious: Yes (Other)
  Sender: FDA-Public Use
  Company Number: DE-PFIZER INC-2014147021

PATIENT
  Age: 73 Year
  Sex: Female

DRUGS (18)
  1. VENLAFAXINE HCL [Suspect]
     Dosage: 37.5 MG, DAILY
     Route: 048
     Dates: start: 20120428, end: 20120503
  2. VENLAFAXINE HCL [Interacting]
     Dosage: 75 MG, DAILY
     Route: 048
     Dates: start: 20120504, end: 20120508
  3. VENLAFAXINE HCL [Interacting]
     Dosage: 150 MG, DAILY
     Route: 048
     Dates: start: 20120509, end: 20120523
  4. VENLAFAXINE HCL [Interacting]
     Dosage: 225 MG, DAILY
     Route: 048
     Dates: start: 20120524, end: 20120531
  5. VENLAFAXINE HCL [Interacting]
     Dosage: 150 MG, DAILY
     Route: 048
     Dates: start: 20120601, end: 20120605
  6. VENLAFAXINE HCL [Interacting]
     Dosage: 75 MG, DAILY
     Route: 048
     Dates: start: 20120606, end: 20120613
  7. VENLAFAXINE HCL [Interacting]
     Dosage: 37.5 MG, DAILY
     Route: 048
     Dates: start: 20120614, end: 20120616
  8. MIANSERIN [Interacting]
     Dosage: 60 MG, DAILY
     Route: 048
     Dates: end: 20120507
  9. MIANSERIN [Interacting]
     Dosage: 30 MG, DAILY
     Route: 048
     Dates: start: 20120508, end: 20120511
  10. MIANSERIN [Interacting]
     Dosage: 75 MG, DAILY
     Route: 048
     Dates: start: 20120602, end: 20120613
  11. MIANSERIN [Interacting]
     Dosage: 37.5 MG, DAILY
     Route: 048
     Dates: start: 20120614, end: 20120616
  12. RAMIPRIL [Concomitant]
     Dosage: 5 MG, DAILY
     Route: 048
  13. HCT [Concomitant]
     Dosage: 25 MG, DAILY
     Route: 048
  14. BISOPROLOL [Concomitant]
     Dosage: 5 MG, DAILY
     Route: 048
  15. PANTOZOL [Concomitant]
     Dosage: 20 MG, DAILY
     Route: 048
  16. ASS [Concomitant]
     Dosage: 100 MG, DAILY
     Route: 048
  17. SIMVASTATIN [Concomitant]
     Dosage: 40 MG, DAILY
     Route: 048
  18. MAGNESIUM [Concomitant]
     Dosage: 1 DF, DAILY
     Route: 048

REACTIONS (2)
  - Drug interaction [Recovered/Resolved]
  - Serotonin syndrome [Recovered/Resolved]
